FAERS Safety Report 25500300 (Version 1)
Quarter: 2025Q3

REPORT INFORMATION
  Report Type: Spontaneous
  Country: US (occurrence: US)
  Receive Date: 20250701
  Receipt Date: 20250701
  Transmission Date: 20251021
  Serious: Yes (Life-Threatening, Hospitalization, Other)
  Sender: COOPERSURGICAL
  Company Number: US-COOPERSURGICAL, INC.-2025CPS005087

PATIENT
  Age: 27 Year
  Sex: Female
  Weight: 90.703 kg

DRUGS (2)
  1. PARAGARD T 380A [Suspect]
     Active Substance: COPPER
     Indication: Contraception
     Route: 015
     Dates: start: 20210917, end: 20220920
  2. FLUOXETINE [Concomitant]
     Active Substance: FLUOXETINE HYDROCHLORIDE
     Dates: start: 202108, end: 202302

REACTIONS (21)
  - Haemorrhage [Recovered/Resolved]
  - Uterine rupture [Recovered/Resolved]
  - Caesarean section [Recovered/Resolved]
  - Reproductive complication associated with device [Unknown]
  - Hypovolaemic shock [Recovered/Resolved]
  - Shock haemorrhagic [Recovered/Resolved]
  - Blood loss anaemia [Recovered/Resolved]
  - Respiratory failure [Recovered/Resolved]
  - Post procedural haemorrhage [Recovered/Resolved]
  - Post-traumatic stress disorder [Not Recovered/Not Resolved]
  - Postpartum anxiety [Not Recovered/Not Resolved]
  - Perinatal depression [Not Recovered/Not Resolved]
  - Hysterectomy [Recovered/Resolved]
  - Pregnancy with contraceptive device [Recovered/Resolved]
  - Drug ineffective [Unknown]
  - Device breakage [Recovered/Resolved]
  - Foreign body in reproductive tract [Recovered/Resolved]
  - Abnormal uterine bleeding [Recovered/Resolved]
  - Vaginal haemorrhage [Unknown]
  - Attention deficit hyperactivity disorder [Not Recovered/Not Resolved]
  - Unevaluable event [Unknown]

NARRATIVE: CASE EVENT DATE: 20230126
